FAERS Safety Report 4946298-2 (Version None)
Quarter: 2006Q1

REPORT INFORMATION
  Report Type: 
  Country: None (occurrence: None)
  Receive Date: 20060316
  Receipt Date: 20060316
  Transmission Date: 20060701
  Serious: No
  Sender: FDA-Public Use
  Company Number: None

PATIENT
  Sex: Female
  Weight: 68.0396 kg

DRUGS (3)
  1. AMBIEN [Suspect]
     Indication: INSOMNIA
     Dosage: 10 MG 1 AT BEDTIME
     Dates: start: 19990101, end: 20060101
  2. AMITRYPTLYNE 25 MG TO 100 MG [Suspect]
     Indication: DEPRESSION
     Dosage: 25 MG 3 TIMES A DAY
     Dates: start: 19940101, end: 19980101
  3. AMITRYPTLYNE 25 MG TO 100 MG [Suspect]
     Indication: INSOMNIA
     Dosage: 25 MG 3 TIMES A DAY
     Dates: start: 19940101, end: 19980101

REACTIONS (4)
  - ABNORMAL SLEEP-RELATED EVENT [None]
  - EATING DISORDER [None]
  - SLEEP WALKING [None]
  - WEIGHT INCREASED [None]
